FAERS Safety Report 18819695 (Version 2)
Quarter: 2021Q1

REPORT INFORMATION
  Report Type: Spontaneous
  Country: SI (occurrence: SI)
  Receive Date: 20210202
  Receipt Date: 20210209
  Transmission Date: 20210419
  Serious: Yes (Other)
  Sender: FDA-Public Use
  Company Number: SI-REGENERON PHARMACEUTICALS, INC.-2021-17422

PATIENT

DRUGS (2)
  1. EYLEA [Suspect]
     Active Substance: AFLIBERCEPT
     Dosage: UNK
     Route: 031
     Dates: start: 20170303
  2. EYLEA [Suspect]
     Active Substance: AFLIBERCEPT
     Indication: VISUAL ACUITY REDUCED
     Dosage: UNK
     Route: 031
     Dates: start: 20170217

REACTIONS (2)
  - Product use in unapproved indication [Unknown]
  - Off label use [Unknown]
